FAERS Safety Report 6126756-8 (Version None)
Quarter: 2009Q1

REPORT INFORMATION
  Report Type: 
  Country: None (occurrence: None)
  Receive Date: 20090320
  Receipt Date: 20090310
  Transmission Date: 20090719
  Serious: Yes (Other)
  Sender: FDA-Public Use
  Company Number: PHHY2009CA07758

PATIENT
  Sex: Male

DRUGS (5)
  1. CLOZARIL [Suspect]
     Indication: SCHIZOPHRENIA
     Dosage: UNK
     Dates: start: 20080118
  2. CLONAZEPAM [Concomitant]
     Dosage: 0.5 MG, QHS
  3. ATORVASTATIN [Concomitant]
     Dosage: 10 MG
  4. RISPERDAL [Concomitant]
     Dosage: UNK
  5. EFFEXOR [Concomitant]
     Dosage: UNK

REACTIONS (7)
  - BUNDLE BRANCH BLOCK RIGHT [None]
  - ELECTROCARDIOGRAM ST SEGMENT DEPRESSION [None]
  - HEART RATE INCREASED [None]
  - LEFT VENTRICULAR HYPERTROPHY [None]
  - MYOCARDIAL ISCHAEMIA [None]
  - SINUS TACHYCARDIA [None]
  - TACHYCARDIA [None]
